FAERS Safety Report 5926363-3 (Version None)
Quarter: 2008Q4

REPORT INFORMATION
  Report Type: 
  Country: None (occurrence: None)
  Receive Date: 20081022
  Receipt Date: 20081016
  Transmission Date: 20090506
  Serious: Yes (Death)
  Sender: FDA-Public Use
  Company Number: US-ROCHE-592083

PATIENT
  Age: 27 Year
  Sex: Male

DRUGS (2)
  1. ROCEPHIN [Suspect]
     Indication: DRUG USE FOR UNKNOWN INDICATION
     Dosage: DOSE AMOUNT: 2-3 GRAMS, FOR SIX HOUR PERIOD
     Route: 065
  2. SEPTRA [Suspect]
     Indication: DRUG USE FOR UNKNOWN INDICATION
     Route: 065

REACTIONS (6)
  - BRAIN OEDEMA [None]
  - CONVULSION [None]
  - DRUG ERUPTION [None]
  - MULTI-ORGAN FAILURE [None]
  - PULMONARY OEDEMA [None]
  - PYREXIA [None]
